FAERS Safety Report 5337131-8 (Version None)
Quarter: 2007Q2

REPORT INFORMATION
  Report Type: 
  Country: None (occurrence: None)
  Receive Date: 20070529
  Receipt Date: 20070521
  Transmission Date: 20071010
  Serious: Yes (Other)
  Sender: FDA-Public Use
  Company Number: PT-ASTRAZENECA-2007AC00584

PATIENT
  Age: 20600 Day
  Sex: Female
  Weight: 68 kg

DRUGS (5)
  1. CRESTOR [Suspect]
     Indication: HYPERCHOLESTEROLAEMIA
     Route: 048
     Dates: start: 20050705, end: 20061107
  2. DIOVAN [Concomitant]
     Indication: HYPERTENSION
     Route: 048
     Dates: start: 20000607
  3. SEDOXIL [Concomitant]
     Indication: ANXIETY
     Route: 048
     Dates: start: 20001217
  4. VASTAREL LM [Concomitant]
     Indication: CEREBROVASCULAR INSUFFICIENCY
     Route: 048
     Dates: start: 20060102
  5. LETTER [Concomitant]
     Indication: HYPOTHYROIDISM
     Route: 048
     Dates: start: 20060613, end: 20061212

REACTIONS (1)
  - HEPATOTOXICITY [None]
